FAERS Safety Report 4885564-6 (Version None)
Quarter: 2006Q1

REPORT INFORMATION
  Report Type: 
  Country: None (occurrence: None)
  Receive Date: 20060119
  Receipt Date: 20051005
  Transmission Date: 20060701
  Serious: Yes (Disabling)
  Sender: FDA-Public Use
  Company Number: US-MERCK-0510USA04295

PATIENT
  Age: 36 Year
  Sex: Male
  Weight: 118 kg

DRUGS (1)
  1. VIOXX [Suspect]
     Indication: INFLAMMATION
     Route: 048

REACTIONS (6)
  - BACK PAIN [None]
  - BIPOLAR DISORDER [None]
  - CARDIOVASCULAR DISORDER [None]
  - HYPERTENSION [None]
  - SHOULDER PAIN [None]
  - TACHYCARDIA [None]
